FAERS Safety Report 8795196 (Version 1)
Quarter: 2012Q4

REPORT INFORMATION
  Report Type: 
  Country: US (occurrence: US)
  Receive Date: 20120917
  Receipt Date: 20120917
  Transmission Date: 20130627
  Serious: No
  Sender: FDA-Public Use
  Company Number: US-ASTRAZENECA-2012SE65907

PATIENT
  Age: 45 Year
  Sex: Female

DRUGS (4)
  1. NEXIUM [Suspect]
     Route: 048
     Dates: start: 20110831
  2. LEVOTHYROXIN [Concomitant]
  3. PRAVASTIN [Concomitant]
  4. IBUPROFEN [Concomitant]
     Indication: PAIN

REACTIONS (1)
  - Hypothyroidism [Unknown]
